FAERS Safety Report 7842828-1 (Version None)
Quarter: 2011Q4

REPORT INFORMATION
  Report Type: 
  Country: None (occurrence: None)
  Receive Date: 20111025
  Receipt Date: 20111020
  Transmission Date: 20120403
  Serious: Yes (Other)
  Sender: FDA-Public Use
  Company Number: GR-PFIZER INC-2011253020

PATIENT
  Age: 40 Year
  Sex: Female
  Weight: 130 kg

DRUGS (3)
  1. ZOLOFT [Suspect]
     Indication: PSYCHOTIC DISORDER
     Dosage: UNK
     Route: 048
     Dates: start: 20080101
  2. DEPAKENE [Concomitant]
  3. ZOLOFT [Suspect]
     Dosage: 150 MG DAILY
     Route: 048
     Dates: start: 20110101

REACTIONS (1)
  - ANGLE CLOSURE GLAUCOMA [None]
